FAERS Safety Report 7383892-6 (Version None)
Quarter: 2011Q1

REPORT INFORMATION
  Report Type: 
  Country: None (occurrence: None)
  Receive Date: 20110330
  Receipt Date: 20110325
  Transmission Date: 20110831
  Serious: Yes (Hospitalization)
  Sender: FDA-Public Use
  Company Number: US-B.I. PHARMACEUTICALS,INC./RIDGEFIELD-2011-BP-09268BP

PATIENT
  Sex: Male

DRUGS (5)
  1. LISINOPRIL [Concomitant]
     Indication: HYPERTENSION
  2. PRADAXA [Suspect]
     Indication: ATRIAL FIBRILLATION
     Dosage: 300 MG
     Route: 048
     Dates: start: 20110127
  3. PREVASTATIN [Concomitant]
     Indication: BLOOD CHOLESTEROL
  4. AMIODARONE HCL [Concomitant]
     Indication: ATRIAL FIBRILLATION
  5. BARIATRIC FUSION [Concomitant]
     Indication: VITAMIN SUPPLEMENTATION
     Dates: start: 20110321

REACTIONS (4)
  - ATRIAL FLUTTER [None]
  - EPISTAXIS [None]
  - DYSPNOEA [None]
  - FLUID RETENTION [None]
